FAERS Safety Report 25017170 (Version 2)
Quarter: 2025Q1

REPORT INFORMATION
  Report Type: Spontaneous
  Country: SG (occurrence: SG)
  Receive Date: 20250227
  Receipt Date: 20250321
  Transmission Date: 20250408
  Serious: Yes (Hospitalization)
  Sender: ROCHE
  Company Number: SG-ROCHE-10000212511

PATIENT
  Age: 75 Year
  Sex: Female
  Weight: 85 kg

DRUGS (1)
  1. PERJETA [Suspect]
     Active Substance: PERTUZUMAB
     Indication: Breast cancer
     Route: 065

REACTIONS (1)
  - Asthma [Unknown]
